FAERS Safety Report 10166869 (Version 1)
Quarter: 2014Q2

REPORT INFORMATION
  Report Type: Spontaneous
  Country: TR (occurrence: None)
  Receive Date: 20140508
  Receipt Date: 20140508
  Transmission Date: 20141212
  Serious: Yes (Life-Threatening, Other)
  Sender: FDA-Public Use
  Company Number: SYM-2014-20108

PATIENT
  Sex: 0

DRUGS (1)
  1. DICLOFENAC SODIUM (DICLOFENAC SODIUM) [Suspect]
     Indication: HEADACHE
     Dosage: SINGLE DOSE, TRANSPLACENTAL
     Route: 064

REACTIONS (5)
  - Caesarean section [None]
  - Ductus arteriosus premature closure [None]
  - Foetal exposure during pregnancy [None]
  - Right ventricular hypertrophy [None]
  - Tricuspid valve incompetence [None]
